FAERS Safety Report 8502658-4 (Version None)
Quarter: 2012Q2

REPORT INFORMATION
  Report Type: 
  Country: None (occurrence: None)
  Receive Date: 20120629
  Receipt Date: 20120619
  Transmission Date: 20120825
  Serious: Yes (Death)
  Sender: FDA-Public Use
  Company Number: DSA_58099_2012

PATIENT
  Sex: Female

DRUGS (3)
  1. FLUOROURACIL [Suspect]
     Indication: BREAST CANCER
     Dosage: (500MG/M2 ON DAYS 1 AND 8, INTRAVENOUS (NOT OTHERWISE SPECIFIED))
     Route: 042
  2. DOXORUBICIN HCL [Suspect]
     Indication: BREAST CANCER
     Dosage: (30 MG/M2 ON DAYS 1 AND 8, INTRAVENOUS (NOT OTHERWISE SPECIFIED)
     Route: 042
  3. CYCLOPHOSPHAMIDE [Suspect]
     Indication: BREAST CANCER
     Dosage: (100 MG/M2 ON DAYS 1-14, ORAL
     Route: 048

REACTIONS (1)
  - PNEUMONIA [None]
